FAERS Safety Report 8954750 (Version 1)
Quarter: 2012Q4

REPORT INFORMATION
  Report Type: 
  Country: US (occurrence: US)
  Receive Date: 20121210
  Receipt Date: 20121210
  Transmission Date: 20130627
  Serious: Yes (Hospitalization)
  Sender: FDA-Public Use
  Company Number: PHHO2012US017427

PATIENT
  Age: 69 Year
  Sex: Female
  Weight: 56.2 kg

DRUGS (11)
  1. AFINITOR [Suspect]
     Indication: BREAST CANCER METASTATIC
     Dosage: 5 mg every other day
     Route: 048
     Dates: start: 20120524, end: 20121128
  2. AFINITOR [Suspect]
     Dosage: UNK
  3. TRASTUZUMAB [Suspect]
     Indication: BREAST CANCER METASTATIC
     Dosage: 6 mg per kg once every 21 day
     Route: 065
     Dates: start: 20120119, end: 20121108
  4. OMEPRAZOLE [Concomitant]
  5. VENLAFAXINE [Concomitant]
  6. AROMASIN [Concomitant]
  7. IBUPROFEN [Concomitant]
     Dosage: UNK
  8. AMBIEN [Concomitant]
  9. AUGMENTIN [Concomitant]
  10. ZOMETA [Concomitant]
  11. ZITHROMAX [Concomitant]
     Dosage: UNK

REACTIONS (3)
  - Cardiomegaly [Unknown]
  - Pericardial effusion [Unknown]
  - Pleural effusion [Unknown]
